FAERS Safety Report 18297772 (Version 1)
Quarter: 2020Q3

REPORT INFORMATION
  Report Type: Spontaneous
  Country: US (occurrence: US)
  Receive Date: 20200923
  Receipt Date: 20200923
  Transmission Date: 20201103
  Serious: Yes (Life-Threatening, Hospitalization, Other)
  Sender: FDA-Public Use
  Company Number: US-HIKMA PHARMACEUTICALS USA INC.-US-H14001-20-52107

PATIENT
  Age: 26 Year
  Sex: Female

DRUGS (4)
  1. IRINOTECAN [Suspect]
     Active Substance: IRINOTECAN
     Indication: METASTASES TO LUNG
  2. TEMOZOLOMIDE. [Concomitant]
     Active Substance: TEMOZOLOMIDE
     Indication: EWING-LIKE SARCOMA
     Dosage: UNKNOWN
     Route: 041
  3. IRINOTECAN [Suspect]
     Active Substance: IRINOTECAN
     Indication: EWING-LIKE SARCOMA
     Dosage: UNKNOWN
     Route: 041
  4. TEMOZOLOMIDE. [Concomitant]
     Active Substance: TEMOZOLOMIDE
     Indication: METASTASES TO LUNG

REACTIONS (7)
  - Dehydration [Unknown]
  - Fluid intake reduced [Unknown]
  - Bradycardia [Recovered/Resolved]
  - Hypotension [Recovered/Resolved]
  - Vomiting [Unknown]
  - Cardiotoxicity [Recovered/Resolved]
  - Sinus arrest [Recovered/Resolved]
